FAERS Safety Report 5807372-1 (Version None)
Quarter: 2008Q3

REPORT INFORMATION
  Report Type: 
  Country: None (occurrence: None)
  Receive Date: 20080711
  Receipt Date: 20080701
  Transmission Date: 20090109
  Serious: Yes (Other)
  Sender: FDA-Public Use
  Company Number: FR-JNJFOC-20061205943

PATIENT
  Age: 71 Year
  Sex: Male
  Weight: 89 kg

DRUGS (10)
  1. REMICADE [Suspect]
  2. REMICADE [Suspect]
  3. REMICADE [Suspect]
  4. REMICADE [Suspect]
  5. REMICADE [Suspect]
     Indication: RHEUMATOID ARTHRITIS
  6. METHOTREXATE [Concomitant]
     Indication: PSORIATIC ARTHROPATHY
     Route: 048
  7. BISOPROLOL FUMARATE [Concomitant]
     Indication: HYPERTENSION
     Route: 048
  8. KARDEGIC [Concomitant]
     Indication: MYOCARDIAL ISCHAEMIA
     Route: 048
  9. PLAVIX [Concomitant]
     Indication: ISCHAEMIC CARDIOMYOPATHY
     Route: 048
  10. FOLIC ACID [Concomitant]
     Route: 048

REACTIONS (2)
  - ANTIBODY TEST POSITIVE [None]
  - CUTANEOUS LUPUS ERYTHEMATOSUS [None]
